FAERS Safety Report 24445633 (Version 2)
Quarter: 2024Q4

REPORT INFORMATION
  Report Type: Report from Study
  Country: CA (occurrence: CA)
  Receive Date: 20241016
  Receipt Date: 20241031
  Transmission Date: 20250114
  Serious: Yes (Hospitalization, Other)
  Sender: EMD SERONO INC
  Company Number: CA-Merck Healthcare KGaA-2024053490

PATIENT
  Sex: Female

DRUGS (1)
  1. MAVENCLAD [Suspect]
     Active Substance: CLADRIBINE
     Indication: Multiple sclerosis
     Dosage: YEAR ONE THERAPY
     Route: 048
     Dates: start: 20231129

REACTIONS (6)
  - Nephrolithiasis [Recovering/Resolving]
  - Kidney infection [Unknown]
  - Hydronephrosis [Unknown]
  - Sepsis [Unknown]
  - Decreased immune responsiveness [Unknown]
  - Lymphocyte count decreased [Unknown]
